FAERS Safety Report 7624061-1 (Version None)
Quarter: 2011Q3

REPORT INFORMATION
  Report Type: 
  Country: None (occurrence: None)
  Receive Date: 20110720
  Receipt Date: 20110707
  Transmission Date: 20111222
  Serious: Yes (Other)
  Sender: FDA-Public Use
  Company Number: PHHY2011JP32015

PATIENT
  Sex: Male

DRUGS (7)
  1. TORISEL [Concomitant]
     Indication: METASTATIC RENAL CELL CARCINOMA
     Dosage: UNK UKN, UNK
     Route: 042
     Dates: start: 20110617, end: 20110701
  2. AFINITOR [Suspect]
     Indication: METASTATIC RENAL CELL CARCINOMA
     Dosage: 10 MG, DAILY
     Route: 048
     Dates: start: 20101208, end: 20110130
  3. AFINITOR [Suspect]
     Dosage: 5 MG, DAILY
     Route: 048
     Dates: start: 20110224, end: 20110421
  4. ACTO [Concomitant]
     Dosage: 15 MG, UNK
     Route: 048
     Dates: start: 20100317, end: 20110607
  5. AFINITOR [Suspect]
     Dosage: 10 MG, DAILY
     Route: 048
     Dates: start: 20110202, end: 20110223
  6. SUNITINIB MALATE [Concomitant]
     Indication: METASTATIC RENAL CELL CARCINOMA
     Dosage: 50 MG, UNK
     Dates: start: 20100312, end: 20101127
  7. GLYBURIDE [Concomitant]
     Dosage: 2.5 MG, UNK
     Route: 048
     Dates: start: 20070101, end: 20110607

REACTIONS (6)
  - HAEMOGLOBIN DECREASED [None]
  - BONE MARROW FAILURE [None]
  - BLOOD GLUCOSE INCREASED [None]
  - ANAEMIA [None]
  - NEOPLASM PROGRESSION [None]
  - NEOPLASM MALIGNANT [None]
